FAERS Safety Report 19609286 (Version 1)
Quarter: 2021Q3

REPORT INFORMATION
  Report Type: Spontaneous
  Country: TH (occurrence: TH)
  Receive Date: 20210726
  Receipt Date: 20210726
  Transmission Date: 20211014
  Serious: Yes (Death, Life-Threatening, Hospitalization)
  Sender: FDA-Public Use
  Company Number: TH-DRREDDYS-SPO/THA/21/0138042

PATIENT
  Age: 60 Year
  Sex: Male

DRUGS (1)
  1. CAPECITABINE. [Suspect]
     Active Substance: CAPECITABINE
     Indication: ADENOCARCINOMA OF COLON

REACTIONS (3)
  - Acute myeloid leukaemia [Not Recovered/Not Resolved]
  - Sepsis [Fatal]
  - Pneumonia bacterial [Not Recovered/Not Resolved]
